FAERS Safety Report 14903069 (Version 4)
Quarter: 2020Q3

REPORT INFORMATION
  Report Type: Spontaneous
  Country: US (occurrence: US)
  Receive Date: 20180516
  Receipt Date: 20200826
  Transmission Date: 20201102
  Serious: Yes (Other)
  Sender: FDA-Public Use
  Company Number: US-SA-2017SA122557

PATIENT

DRUGS (3)
  1. LANTUS SOLOSTAR [Suspect]
     Active Substance: INSULIN GLARGINE
     Indication: DIABETES MELLITUS
     Dosage: 115 UNITS IN THE MORNING AND 110 UNITS IN THE EVENING ALONG WITH 115 UNITS IN THE MIDDLE OF THE DAY
     Route: 065
  2. NOVOLOG [Concomitant]
     Active Substance: INSULIN ASPART
     Dosage: UNK
     Route: 065
  3. LANTUS SOLOSTAR [Suspect]
     Active Substance: INSULIN GLARGINE
     Dosage: SHE HAS TO USE 2 DOSES WITH 60 UNITS IN THE MORNING AND THE REST AT ABOUT 6:30 EACH EVENING
     Route: 065

REACTIONS (17)
  - Urinary retention [Recovered/Resolved]
  - Renal disorder [Unknown]
  - Emotional disorder [Unknown]
  - Memory impairment [Unknown]
  - Peripheral swelling [Unknown]
  - Therapeutic response decreased [Unknown]
  - Burning sensation [Unknown]
  - Bladder disorder [Unknown]
  - Intentional product misuse [Unknown]
  - Intentional dose omission [Unknown]
  - Off label use [Unknown]
  - Muscle spasms [Recovered/Resolved]
  - Cough [Unknown]
  - Blood glucose increased [Unknown]
  - Illness [Unknown]
  - Overweight [Unknown]
  - Abdominal discomfort [Unknown]
